FAERS Safety Report 8111892-7 (Version None)
Quarter: 2012Q1

REPORT INFORMATION
  Report Type: 
  Country: None (occurrence: None)
  Receive Date: 20120203
  Receipt Date: 20101223
  Transmission Date: 20120608
  Serious: No
  Sender: FDA-Public Use
  Company Number: US-GLAXOSMITHKLINE-A0901436A

PATIENT
  Age: 64 Year
  Sex: Female

DRUGS (3)
  1. ARIXTRA [Suspect]
     Indication: HYPERCOAGULATION
     Route: 058
     Dates: start: 20070601
  2. ASPIRIN [Concomitant]
  3. MULTIPLE MEDICATIONS [Concomitant]

REACTIONS (4)
  - VISION BLURRED [None]
  - THERAPEUTIC RESPONSE DECREASED [None]
  - CONTUSION [None]
  - EPISTAXIS [None]
